FAERS Safety Report 8974126 (Version 1)
Quarter: 2012Q4

REPORT INFORMATION
  Report Type: Spontaneous
  Country: US (occurrence: None)
  Receive Date: 20121217
  Receipt Date: 20121217
  Transmission Date: 20130627
  Serious: Yes (Hospitalization)
  Sender: FDA-Public Use
  Company Number: None

PATIENT
  Sex: Female
  Weight: 91.4 kg

DRUGS (4)
  1. TRETINOIN [Suspect]
  2. ACETAZOLAMIDE [Concomitant]
  3. MEDROL PAK [Concomitant]
  4. NAPROXEN [Concomitant]

REACTIONS (3)
  - Headache [None]
  - Nausea [None]
  - Vomiting [None]
